FAERS Safety Report 18107379 (Version 2)
Quarter: 2020Q3

REPORT INFORMATION
  Report Type: Spontaneous
  Country: CN (occurrence: CN)
  Receive Date: 20200804
  Receipt Date: 20200812
  Transmission Date: 20201103
  Serious: Yes (Hospitalization, Other)
  Sender: FDA-Public Use
  Company Number: CN-PFIZER INC-2020275253

PATIENT
  Age: 42 Year
  Sex: Male
  Weight: 75 kg

DRUGS (9)
  1. LOSARTAN. [Concomitant]
     Active Substance: LOSARTAN
     Dosage: 50 MG, DAILY
     Dates: start: 2015
  2. METHYLPREDNISOLONE. [Suspect]
     Active Substance: METHYLPREDNISOLONE
     Indication: IGA NEPHROPATHY
     Dosage: 32 MG, 1X/DAY TAPERING DOWN TO 8 MG
     Route: 048
     Dates: start: 201808
  3. METHYLPREDNISOLONE. [Suspect]
     Active Substance: METHYLPREDNISOLONE
     Dosage: 8 MG, 1X/DAY (TAPERING DOWN FROM 32 MG TO 8 MG)
     Route: 048
     Dates: end: 201811
  4. ETANERCEPT [Concomitant]
     Active Substance: ETANERCEPT
     Dosage: 25MG EVERY 10 DAYS
     Route: 058
     Dates: start: 201804
  5. METFORMIN [Concomitant]
     Active Substance: METFORMIN HYDROCHLORIDE
     Indication: TYPE 2 DIABETES MELLITUS
     Dosage: 500 MG, 1X/DAY
     Route: 048
     Dates: start: 2016
  6. CYCLOSPORINE A [Concomitant]
     Active Substance: CYCLOSPORINE
     Indication: IGA NEPHROPATHY
     Dosage: 75 MG, 2X/DAY (MICROEMULSION FORMULATED)
     Route: 048
     Dates: start: 201808
  7. ETANERCEPT [Concomitant]
     Active Substance: ETANERCEPT
     Indication: ANKYLOSING SPONDYLITIS
     Dosage: 25 MG, 2X/WEEK
     Dates: start: 201407, end: 201507
  8. ETANERCEPT [Concomitant]
     Active Substance: ETANERCEPT
     Dosage: 25 MG, WEEKLY
     Route: 058
     Dates: start: 201507, end: 201710
  9. LEVOAMLODIPINE MALEATE [Concomitant]
     Indication: HYPERTENSION
     Dosage: 2.5 MG, 1X/DAY
     Route: 048
     Dates: start: 2014

REACTIONS (4)
  - Off label use [Unknown]
  - Hyperglycaemia [Recovered/Resolved]
  - Gastrointestinal disorder [Recovered/Resolved]
  - Product use in unapproved indication [Unknown]

NARRATIVE: CASE EVENT DATE: 2018
